FAERS Safety Report 8493883-X (Version None)
Quarter: 2012Q3

REPORT INFORMATION
  Report Type: 
  Country: None (occurrence: None)
  Receive Date: 20120706
  Receipt Date: 20120702
  Transmission Date: 20120928
  Serious: Yes (Other)
  Sender: FDA-Public Use
  Company Number: IT-GILEAD-2012-0057423

PATIENT
  Sex: Male

DRUGS (7)
  1. GABAPENTIN [Concomitant]
     Dosage: UNK
     Dates: start: 20101006
  2. ARCOXIA [Concomitant]
     Dosage: UNK, PRN
  3. AMITRIPTYLINE HCL [Concomitant]
     Dosage: UNK
     Dates: start: 20101006
  4. VIRAMUNE [Suspect]
     Indication: ANTIRETROVIRAL THERAPY
     Dosage: UNK
     Dates: start: 20101021, end: 20120618
  5. TRUVADA [Suspect]
     Indication: HIV INFECTION
     Dosage: 1 DF, QD
     Route: 048
     Dates: start: 20101021, end: 20120618
  6. ALFUZOSIN HCL [Concomitant]
     Dosage: UNK
     Dates: start: 20101006
  7. ENTUMIN [Concomitant]
     Dosage: UNK
     Dates: start: 20101006

REACTIONS (2)
  - SOMNOLENCE [None]
  - HALLUCINATION [None]
